FAERS Safety Report 12797194 (Version 3)
Quarter: 2016Q4

REPORT INFORMATION
  Report Type: Spontaneous
  Country: TW (occurrence: TW)
  Receive Date: 20160929
  Receipt Date: 20161129
  Transmission Date: 20170207
  Serious: Yes (Hospitalization, Other)
  Sender: FDA-Public Use
  Company Number: TW-ELI_LILLY_AND_COMPANY-TW201609008846

PATIENT
  Age: 24 Year
  Sex: Female

DRUGS (1)
  1. FORTEO [Suspect]
     Active Substance: TERIPARATIDE
     Indication: PRODUCT USED FOR UNKNOWN INDICATION
     Dosage: UNK UNK, UNKNOWN
     Route: 065
     Dates: start: 20160531

REACTIONS (4)
  - Postoperative wound infection [Not Recovered/Not Resolved]
  - Soft tissue infection [Unknown]
  - Femur fracture [Unknown]
  - Staphylococcal osteomyelitis [Unknown]
